FAERS Safety Report 9160718 (Version 2)
Quarter: 2013Q3

REPORT INFORMATION
  Report Type: Spontaneous
  Country: US (occurrence: US)
  Receive Date: 20130313
  Receipt Date: 20130919
  Transmission Date: 20140515
  Serious: Yes (Death, Hospitalization, Congenital Anomaly)
  Sender: FDA-Public Use
  Company Number: US-JNJFOC-20130306472

PATIENT
  Age: 0 Year
  Sex: Male

DRUGS (10)
  1. TOPAMAX [Suspect]
     Indication: FOETAL EXPOSURE DURING PREGNANCY
     Dosage: 200-500 MG EVERY DAY
     Route: 064
     Dates: start: 2005
  2. LAMICTAL [Suspect]
     Indication: FOETAL EXPOSURE DURING PREGNANCY
     Route: 064
  3. XANAX [Suspect]
     Indication: FOETAL EXPOSURE DURING PREGNANCY
     Route: 064
  4. AMBIEN [Suspect]
     Indication: FOETAL EXPOSURE DURING PREGNANCY
     Route: 064
  5. TRAZODONE [Suspect]
     Indication: FOETAL EXPOSURE DURING PREGNANCY
     Route: 064
  6. LEXAPRO [Suspect]
     Indication: FOETAL EXPOSURE DURING PREGNANCY
     Route: 064
  7. ZOLOFT [Suspect]
     Indication: FOETAL EXPOSURE DURING PREGNANCY
     Route: 064
  8. DILANTIN [Suspect]
     Indication: FOETAL EXPOSURE DURING PREGNANCY
     Route: 064
  9. Z-PACK [Suspect]
     Indication: FOETAL EXPOSURE DURING PREGNANCY
     Route: 064
  10. METFORMIN [Suspect]
     Indication: FOETAL EXPOSURE DURING PREGNANCY
     Route: 064

REACTIONS (19)
  - Respiratory failure [Unknown]
  - Atrial septal defect [Unknown]
  - Sepsis [Unknown]
  - Thrombocytopenia [Unknown]
  - Necrotising colitis [Unknown]
  - Cardiac failure congestive [Unknown]
  - Premature baby [Fatal]
  - Ventricular septal defect [Unknown]
  - Hypospadias [Unknown]
  - Transposition of the great vessels [Fatal]
  - Double outlet right ventricle [Fatal]
  - Lung disorder [Fatal]
  - Chromosomal deletion [Fatal]
  - Cytogenetic abnormality [Fatal]
  - Factor V Leiden mutation [Unknown]
  - Tracheitis [Unknown]
  - Periventricular leukomalacia [Unknown]
  - Vascular skin disorder [Unknown]
  - Patent ductus arteriosus [Unknown]
